FAERS Safety Report 22969810 (Version 2)
Quarter: 2023Q4

REPORT INFORMATION
  Report Type: Report from Study
  Country: EG (occurrence: EG)
  Receive Date: 20230922
  Receipt Date: 20231002
  Transmission Date: 20240110
  Serious: Yes (Hospitalization, Other)
  Sender: FDA-Public Use
  Company Number: EG-002147023-NVSC2023EG201726

PATIENT
  Age: 69 Year
  Sex: Female

DRUGS (7)
  1. ENTRESTO [Suspect]
     Active Substance: SACUBITRIL\VALSARTAN
     Indication: Cardiac failure
     Dosage: 1 DOSAGE FORM, BID (STRENGTH: 200, ONE TAB TWICE DAILY)
     Route: 048
     Dates: start: 202004, end: 20230913
  2. ENTRESTO [Suspect]
     Active Substance: SACUBITRIL\VALSARTAN
     Dosage: 1 DOSAGE FORM, BID (100 MG)
     Route: 048
     Dates: start: 202004, end: 202205
  3. ENTRESTO [Suspect]
     Active Substance: SACUBITRIL\VALSARTAN
     Dosage: 1 DOSAGE FORM, BID (100 MG)
     Route: 048
     Dates: start: 202212
  4. INSULIN NOS [Concomitant]
     Active Substance: INSULIN NOS
     Indication: Product used for unknown indication
     Dosage: UNK
     Route: 065
  5. ASPIRIN [Concomitant]
     Active Substance: ASPIRIN
     Indication: Coagulopathy
     Dosage: 1 DOSAGE FORM, QD
     Route: 065
     Dates: start: 2010
  6. BISOPROLOL FUMARATE [Concomitant]
     Active Substance: BISOPROLOL FUMARATE
     Indication: Hypertension
     Dosage: 1 DOSAGE FORM, QD
     Route: 065
     Dates: start: 2010
  7. NITRO MACK [Concomitant]
     Indication: Hypertension
     Dosage: 1 DOSAGE FORM, QD
     Route: 065
     Dates: start: 2018

REACTIONS (11)
  - Pulmonary oedema [Unknown]
  - Colon injury [Unknown]
  - Pneumonitis [Unknown]
  - Condition aggravated [Unknown]
  - Ejection fraction decreased [Recovering/Resolving]
  - Palpitations [Recovered/Resolved]
  - Ear pain [Recovered/Resolved]
  - Blood glucose increased [Recovered/Resolved]
  - Inflammation [Recovered/Resolved]
  - Blood creatinine increased [Recovered/Resolved]
  - Inappropriate schedule of product administration [Unknown]

NARRATIVE: CASE EVENT DATE: 20200401
